FAERS Safety Report 5642161-2 (Version None)
Quarter: 2008Q1

REPORT INFORMATION
  Report Type: 
  Country: None (occurrence: None)
  Receive Date: 20080225
  Receipt Date: 20080208
  Transmission Date: 20080703
  Serious: Yes (Death, Hospitalization)
  Sender: FDA-Public Use
  Company Number: FABR-1000082

PATIENT
  Sex: Male

DRUGS (1)
  1. FABRAZYME [Suspect]
     Indication: FABRY'S DISEASE
     Dosage: 500 MG, Q2W, INTRAVENOUS
     Route: 042
     Dates: end: 20071201

REACTIONS (5)
  - AORTIC ANEURYSM [None]
  - DIALYSIS [None]
  - ILL-DEFINED DISORDER [None]
  - POST PROCEDURAL COMPLICATION [None]
  - RENAL FAILURE ACUTE [None]
